FAERS Safety Report 21722715 (Version 1)
Quarter: 2022Q4

REPORT INFORMATION
  Report Type: Spontaneous
  Country: FR (occurrence: FR)
  Receive Date: 20221213
  Receipt Date: 20221213
  Transmission Date: 20230113
  Serious: Yes (Other)
  Sender: FDA-Public Use
  Company Number: None

PATIENT
  Age: 33 Year
  Sex: Male

DRUGS (1)
  1. DUPIXENT [Suspect]
     Active Substance: DUPILUMAB
     Indication: Dermatitis atopic
     Dosage: 300 MG, Q4D, 2F/WEEK
     Route: 058
     Dates: start: 202206, end: 202211

REACTIONS (1)
  - Testicular germ cell tumour mixed [Not Recovered/Not Resolved]

NARRATIVE: CASE EVENT DATE: 20221020
